FAERS Safety Report 6494779-5 (Version None)
Quarter: 2009Q4

REPORT INFORMATION
  Report Type: 
  Country: None (occurrence: None)
  Receive Date: 20091214
  Receipt Date: 20090324
  Transmission Date: 20100525
  Serious: No
  Sender: FDA-Public Use
  Company Number: US-BRISTOL-MYERS SQUIBB COMPANY-14558803

PATIENT
  Age: 5 Decade
  Sex: Female

DRUGS (2)
  1. ABILIFY [Suspect]
     Indication: BIPOLAR II DISORDER
     Dosage: DECREASED TO 2MG
  2. ABILIFY [Suspect]
     Indication: DEPRESSION
     Dosage: DECREASED TO 2MG

REACTIONS (2)
  - OEDEMA [None]
  - PAIN IN EXTREMITY [None]
